FAERS Safety Report 7049853-1 (Version None)
Quarter: 2010Q4

REPORT INFORMATION
  Report Type: 
  Country: None (occurrence: None)
  Receive Date: 20101012
  Receipt Date: 20100930
  Transmission Date: 20110411
  Serious: Yes (Death, Hospitalization)
  Sender: FDA-Public Use
  Company Number: 106590

PATIENT
  Age: 76 Year
  Sex: Male
  Weight: 90.7194 kg

DRUGS (1)
  1. ETOPOSIDE [Suspect]
     Indication: LUNG NEOPLASM MALIGNANT
     Dates: start: 20091207, end: 20091209

REACTIONS (5)
  - LOSS OF CONSCIOUSNESS [None]
  - NAUSEA [None]
  - NEUTROPENIA [None]
  - SEPTIC SHOCK [None]
  - VOMITING [None]
